FAERS Safety Report 18685347 (Version 1)
Quarter: 2020Q4

REPORT INFORMATION
  Report Type: Report from Study
  Country: US (occurrence: US)
  Receive Date: 20201230
  Receipt Date: 20201230
  Transmission Date: 20210114
  Serious: No
  Sender: FDA-Public Use
  Company Number: US-SUNOVION-2020SUN003797

PATIENT
  Sex: Male

DRUGS (3)
  1. CARBIDOPA. [Concomitant]
     Active Substance: CARBIDOPA
     Dosage: UNK
     Dates: end: 20201219
  2. LEVODOPA [Concomitant]
     Active Substance: LEVODOPA
     Dosage: UNK
     Dates: end: 20201219
  3. KYNMOBI [Suspect]
     Active Substance: APOMORPHINE HYDROCHLORIDE
     Dosage: 10 MG
     Route: 060
     Dates: start: 20201219

REACTIONS (2)
  - COVID-19 [Unknown]
  - Tremor [Unknown]
